FAERS Safety Report 6243243-7 (Version None)
Quarter: 2009Q2

REPORT INFORMATION
  Report Type: 
  Country: None (occurrence: None)
  Receive Date: 20090624
  Receipt Date: 20090615
  Transmission Date: 20091009
  Serious: Yes (Hospitalization, Other)
  Sender: FDA-Public Use
  Company Number: DE-ABBOTT-09P-062-0577491-00

PATIENT
  Sex: Male
  Weight: 73 kg

DRUGS (4)
  1. HUMIRA [Suspect]
     Indication: ANKYLOSING SPONDYLITIS
     Route: 058
     Dates: start: 20081110, end: 20081201
  2. HUMIRA [Suspect]
     Route: 058
     Dates: start: 20090501
  3. BONIVA [Concomitant]
     Indication: OSTEOPOROSIS
     Route: 048
     Dates: start: 20080101
  4. VIGANTOLETTEN [Concomitant]
     Indication: OSTEOPOROSIS
     Dates: start: 20060101

REACTIONS (4)
  - CHILLS [None]
  - GENERAL PHYSICAL HEALTH DETERIORATION [None]
  - LEGIONELLA INFECTION [None]
  - PYREXIA [None]
